FAERS Safety Report 23865089 (Version 1)
Quarter: 2024Q2

REPORT INFORMATION
  Report Type: Spontaneous
  Country: US (occurrence: US)
  Receive Date: 20240517
  Receipt Date: 20240517
  Transmission Date: 20240715
  Serious: No
  Sender: FDA-Public Use
  Company Number: US-AJANTA-2023AJA00243

PATIENT
  Age: 52 Year
  Sex: Female

DRUGS (7)
  1. CHOLESTYRAMINE [Suspect]
     Active Substance: CHOLESTYRAMINE
     Indication: Off label use
     Route: 048
     Dates: start: 20231016
  2. CHOLESTYRAMINE [Suspect]
     Active Substance: CHOLESTYRAMINE
  3. CHOLESTYRAMINE [Suspect]
     Active Substance: CHOLESTYRAMINE
  4. CHOLESTYRAMINE [Suspect]
     Active Substance: CHOLESTYRAMINE
  5. CHOLESTYRAMINE [Suspect]
     Active Substance: CHOLESTYRAMINE
  6. CHOLESTYRAMINE [Suspect]
     Active Substance: CHOLESTYRAMINE
  7. CHOLESTYRAMINE [Suspect]
     Active Substance: CHOLESTYRAMINE

REACTIONS (7)
  - Foreign body in mouth [Unknown]
  - Product solubility abnormal [Unknown]
  - Off label use [Unknown]
  - Product physical consistency issue [Unknown]
  - Product substitution issue [Unknown]
  - Product quality issue [Unknown]
  - Product taste abnormal [Unknown]

NARRATIVE: CASE EVENT DATE: 20231016
